FAERS Safety Report 18402234 (Version 6)
Quarter: 2020Q4

REPORT INFORMATION
  Report Type: Spontaneous
  Country: CA (occurrence: CA)
  Receive Date: 20201019
  Receipt Date: 20201228
  Transmission Date: 20210114
  Serious: Yes (Hospitalization)
  Sender: FDA-Public Use
  Company Number: CA-PFIZER INC-2020277271

PATIENT
  Age: 72 Year
  Sex: Male

DRUGS (4)
  1. KEYTRUDA [Concomitant]
     Active Substance: PEMBROLIZUMAB
     Dosage: UNK
  2. INLYTA [Suspect]
     Active Substance: AXITINIB
     Dosage: 3 MG, CYCLIC (TWICE DAILY, 4 WEEKS CYCLE).
  3. INLYTA [Suspect]
     Active Substance: AXITINIB
     Dosage: 5 MG, 2X/DAY X 60 DAYS
     Route: 048
     Dates: start: 20200723
  4. INLYTA [Suspect]
     Active Substance: AXITINIB
     Dosage: 4 MG, CYCLIC (2X/DAY 4-WEEK CYCLE)
     Route: 048
     Dates: start: 20201015

REACTIONS (4)
  - Off label use [Unknown]
  - Accident [Unknown]
  - Diarrhoea [Unknown]
  - Neoplasm progression [Unknown]

NARRATIVE: CASE EVENT DATE: 2020
